FAERS Safety Report 10889705 (Version 2)
Quarter: 2025Q1

REPORT INFORMATION
  Report Type: Spontaneous
  Country: US (occurrence: US)
  Receive Date: 20150306
  Receipt Date: 20250227
  Transmission Date: 20250409
  Serious: Yes (Hospitalization, Other)
  Sender: AMGEN
  Company Number: US-AMGEN-USASP2015019411

PATIENT
  Sex: Male

DRUGS (2)
  1. ENBREL [Suspect]
     Active Substance: ETANERCEPT
     Indication: Maternal exposure during breast feeding
     Route: 063
  2. FOLIC ACID [Concomitant]
     Active Substance: FOLIC ACID
     Route: 063

REACTIONS (2)
  - Pneumothorax [Unknown]
  - Exposure via breast milk [Unknown]
